FAERS Safety Report 8280760-2 (Version None)
Quarter: 2012Q2

REPORT INFORMATION
  Report Type: 
  Country: None (occurrence: None)
  Receive Date: 20120412
  Receipt Date: 20120403
  Transmission Date: 20120825
  Serious: Yes (Other)
  Sender: FDA-Public Use
  Company Number: SE-ABBOTT-12P-150-0916608-00

PATIENT
  Sex: Female

DRUGS (5)
  1. METHOTREXATE [Concomitant]
     Indication: PRODUCT USED FOR UNKNOWN INDICATION
     Dates: start: 19840101, end: 20050101
  2. ENBREL [Suspect]
     Indication: PRODUCT USED FOR UNKNOWN INDICATION
     Dates: start: 20050501, end: 20070501
  3. HUMIRA [Suspect]
     Indication: PSORIASIS
     Dates: start: 20070815, end: 20110113
  4. METHOTREXATE [Concomitant]
     Dates: start: 20051101, end: 20110101
  5. ENBREL [Suspect]
     Dates: start: 20060901, end: 20070801

REACTIONS (1)
  - MALIGNANT MELANOMA STAGE IV [None]
